FAERS Safety Report 7183248-5 (Version None)
Quarter: 2010Q4

REPORT INFORMATION
  Report Type: 
  Country: None (occurrence: None)
  Receive Date: 20101222
  Receipt Date: 20100420
  Transmission Date: 20110411
  Serious: No
  Sender: FDA-Public Use
  Company Number: A0855898A

PATIENT
  Age: 58 Year
  Sex: Female

DRUGS (7)
  1. FLONASE [Suspect]
     Route: 045
  2. VERAMYST [Suspect]
     Route: 045
     Dates: start: 20100327, end: 20100401
  3. ATENOLOL [Concomitant]
  4. ATIVAN [Concomitant]
  5. ACTONEL [Concomitant]
  6. VITAMINS [Concomitant]
  7. ECHINACEA [Concomitant]

REACTIONS (2)
  - DYSGEUSIA [None]
  - HEADACHE [None]
